FAERS Safety Report 25934660 (Version 1)
Quarter: 2025Q4

REPORT INFORMATION
  Report Type: Other
  Country: EU (occurrence: EU)
  Receive Date: 20251017
  Receipt Date: 20251017
  Transmission Date: 20260118
  Serious: Yes (Life-Threatening, Other)
  Sender: BRACCO
  Company Number: None

PATIENT
  Age: 15 Year
  Sex: Male

DRUGS (3)
  1. SULFUR HEXAFLUORIDE [Suspect]
     Active Substance: SULFUR HEXAFLUORIDE
     Dosage: 2.5 ML AS A BOLUS
     Route: 042
     Dates: start: 20250926, end: 20250926
  2. SULFUR HEXAFLUORIDE [Suspect]
     Active Substance: SULFUR HEXAFLUORIDE
     Dosage: 2.5 ML AS A BOLUS
     Route: 042
     Dates: start: 20250926, end: 20250926
  3. SULFUR HEXAFLUORIDE [Suspect]
     Active Substance: SULFUR HEXAFLUORIDE
     Dosage: 2.5 ML AS A BOLUS
     Route: 042
     Dates: start: 20250926, end: 20250926

REACTIONS (2)
  - Off label use [Recovered/Resolved]
  - Anaphylactic shock [Recovered/Resolved]

NARRATIVE: CASE EVENT DATE: 20250926
